FAERS Safety Report 5652216-4 (Version None)
Quarter: 2008Q1

REPORT INFORMATION
  Report Type: 
  Country: None (occurrence: None)
  Receive Date: 20080304
  Receipt Date: 20080222
  Transmission Date: 20080703
  Serious: Yes (Death)
  Sender: FDA-Public Use
  Company Number: GXKR2008NL01941

PATIENT
  Age: 69 Year
  Sex: Male

DRUGS (1)
  1. SULFASALAZINE [Suspect]
     Indication: RHEUMATOID ARTHRITIS
     Dosage: 1 G, BID

REACTIONS (20)
  - ANTINEUTROPHIL CYTOPLASMIC ANTIBODY POSITIVE [None]
  - CARDIAC ARREST [None]
  - CREPITATIONS [None]
  - DYSPNOEA [None]
  - FATIGUE [None]
  - GLOMERULONEPHRITIS PROLIFERATIVE [None]
  - HAEMATURIA [None]
  - INTERSTITIAL LUNG DISEASE [None]
  - MALAISE [None]
  - NAUSEA [None]
  - NORMOCHROMIC NORMOCYTIC ANAEMIA [None]
  - PALLOR [None]
  - PRODUCTIVE COUGH [None]
  - PROTEINURIA [None]
  - PYREXIA [None]
  - RALES [None]
  - RENAL FAILURE [None]
  - SPUTUM DISCOLOURED [None]
  - WEGENER'S GRANULOMATOSIS [None]
  - WEIGHT DECREASED [None]
